FAERS Safety Report 24803049 (Version 1)
Quarter: 2025Q1

REPORT INFORMATION
  Report Type: Spontaneous
  Country: US (occurrence: US)
  Receive Date: 20250103
  Receipt Date: 20250103
  Transmission Date: 20250409
  Serious: No
  Sender: DR REDDYS
  Company Number: US-DRL-USA-SPO/USA/24/0019127

PATIENT
  Age: 17 Year
  Sex: Female

DRUGS (1)
  1. ZENATANE [Suspect]
     Active Substance: ISOTRETINOIN
     Indication: Product used for unknown indication
     Route: 065
     Dates: start: 20241118

REACTIONS (6)
  - Skin lesion inflammation [Unknown]
  - Acne [Unknown]
  - Pustule [Unknown]
  - Papule [Unknown]
  - Lip dry [Unknown]
  - Eczema [Unknown]
